FAERS Safety Report 5132703-8 (Version None)
Quarter: 2006Q4

REPORT INFORMATION
  Report Type: 
  Country: None (occurrence: None)
  Receive Date: 20061023
  Receipt Date: 20060929
  Transmission Date: 20070319
  Serious: Yes (Hospitalization, Other)
  Sender: FDA-Public Use
  Company Number: US-GLAXOSMITHKLINE-A0621954A

PATIENT
  Age: 38 Year
  Sex: Female
  Weight: 70 kg

DRUGS (3)
  1. LAMICTAL [Suspect]
     Indication: BIPOLAR DISORDER
     Dosage: 25MG PER DAY
     Route: 048
     Dates: start: 20060810, end: 20060924
  2. EFFEXOR XR [Concomitant]
     Dosage: 75MG IN THE MORNING
     Route: 048
  3. LOESTRIN [Concomitant]

REACTIONS (10)
  - ANTINUCLEAR ANTIBODY POSITIVE [None]
  - CHILLS [None]
  - HEADACHE [None]
  - HYPOKALAEMIA [None]
  - MALAISE [None]
  - MENINGITIS [None]
  - MENINGITIS ASEPTIC [None]
  - NAUSEA [None]
  - PYREXIA [None]
  - VOMITING [None]
